FAERS Safety Report 11482289 (Version 2)
Quarter: 2015Q3

REPORT INFORMATION
  Report Type: Spontaneous
  Country: US (occurrence: US)
  Receive Date: 20150903
  Receipt Date: 20150903
  Transmission Date: 20151125
  Serious: No
  Sender: FDA-Public Use
  Company Number: US-ELI_LILLY_AND_COMPANY-US201204001691

PATIENT
  Age: 63 Year
  Sex: Female

DRUGS (8)
  1. PROBENECID. [Concomitant]
     Active Substance: PROBENECID
  2. CYMBALTA [Suspect]
     Active Substance: DULOXETINE HYDROCHLORIDE
     Indication: OSTEOARTHRITIS
     Dosage: 60 MG, QD
  3. XANAX [Concomitant]
     Active Substance: ALPRAZOLAM
  4. CLARITIN [Concomitant]
     Active Substance: LORATADINE
  5. CYMBALTA [Suspect]
     Active Substance: DULOXETINE HYDROCHLORIDE
     Dosage: 60 MG, QD
  6. CYMBALTA [Suspect]
     Active Substance: DULOXETINE HYDROCHLORIDE
     Dosage: 120 MG, QD
  7. SYNTHROID [Concomitant]
     Active Substance: LEVOTHYROXINE SODIUM
  8. METFORMIN [Concomitant]
     Active Substance: METFORMIN HYDROCHLORIDE

REACTIONS (13)
  - Depressed mood [Unknown]
  - Musculoskeletal pain [Unknown]
  - Emotional poverty [Unknown]
  - Pain in extremity [Unknown]
  - Hypersensitivity [Unknown]
  - Fatigue [Unknown]
  - Anxiety [Unknown]
  - Memory impairment [Unknown]
  - Drug effect incomplete [Not Recovered/Not Resolved]
  - Neck pain [Unknown]
  - Back pain [Unknown]
  - Crying [Unknown]
  - Gait disturbance [Unknown]
